FAERS Safety Report 7222451-2 (Version None)
Quarter: 2011Q1

REPORT INFORMATION
  Report Type: 
  Country: None (occurrence: None)
  Receive Date: 20110112
  Receipt Date: 20101230
  Transmission Date: 20110831
  Serious: Yes (Death)
  Sender: FDA-Public Use
  Company Number: US-ACTELION-A-US2010-43104

PATIENT

DRUGS (4)
  1. VENTAVIS [Concomitant]
     Indication: PULMONARY ARTERIAL HYPERTENSION
     Dosage: 5 X6-9/DAY
     Route: 055
     Dates: start: 20101214
  2. COUMADIN [Concomitant]
  3. BOSENTAN TABLET UNKNOWN US MG [Suspect]
     Dosage: 125 MG, BID
     Route: 048
  4. BOSENTAN TABLET UNKNOWN US MG [Suspect]
     Indication: PULMONARY ARTERIAL HYPERTENSION
     Dosage: 62.5
     Route: 048
     Dates: start: 20090616, end: 20101213

REACTIONS (2)
  - ATRIAL FIBRILLATION [None]
  - CARDIOVERSION [None]
